FAERS Safety Report 15412401 (Version 13)
Quarter: 2022Q1

REPORT INFORMATION
  Report Type: Report from Study
  Country: CN (occurrence: None)
  Receive Date: 20180921
  Receipt Date: 20220304
  Transmission Date: 20220423
  Serious: Yes (Hospitalization)
  Sender: FDA-Public Use
  Company Number: CN-ROCHE-2184196

PATIENT
  Age: 44 Year
  Sex: Female
  Weight: 61 kg

DRUGS (86)
  1. ATEZOLIZUMAB [Suspect]
     Active Substance: ATEZOLIZUMAB
     Indication: Ovarian cancer
     Dosage: DATE OF MOST RECENT DOSE OF BLINDED ATEZOLIZUMAB PRIOR TO SAE ONSET: 21/AUG/2018?ON 20/NOV/2018, REC
     Route: 041
     Dates: start: 20180706
  2. BEVACIZUMAB [Suspect]
     Active Substance: BEVACIZUMAB
     Indication: Ovarian cancer
     Dosage: DATE OF MOST RECENT DOSE OF BEVACIZUMAB OF 967.5 MG PRIOR TO AE ONSET 21/AUG/2018?ON 20/NOV/2018, RE
     Route: 042
     Dates: start: 20180730
  3. CARBOPLATIN [Suspect]
     Active Substance: CARBOPLATIN
     Indication: Ovarian cancer
     Dosage: DATE OF MOST RECENT DOSE OF CARBOPLATIN OF 600 MG PRIOR TO AE ONSET 21/AUG/2018?AT A DOSE TO ACHIEVE
     Route: 042
     Dates: start: 20180706
  4. PACLITAXEL [Suspect]
     Active Substance: PACLITAXEL
     Indication: Ovarian cancer
     Dosage: DATE OF MOST RECENT DOSE OF PACLITAXEL OF 270 MG PRIOR TO AE ONSET 21/AUG/2018?ON 20/NOV/2018, RECEI
     Route: 042
     Dates: start: 20180706
  5. SPIRONOLACTONE [Concomitant]
     Active Substance: SPIRONOLACTONE
     Indication: Hyperaldosteronism
     Dates: start: 20180611
  6. DEXAMETHASONE ACETATE [Concomitant]
     Active Substance: DEXAMETHASONE ACETATE
     Route: 048
     Dates: start: 20180820, end: 20180821
  7. DEXAMETHASONE ACETATE [Concomitant]
     Active Substance: DEXAMETHASONE ACETATE
     Route: 048
     Dates: start: 20180729, end: 20180730
  8. DEXAMETHASONE ACETATE [Concomitant]
     Active Substance: DEXAMETHASONE ACETATE
     Route: 048
     Dates: start: 20181008, end: 20181009
  9. DEXAMETHASONE ACETATE [Concomitant]
     Active Substance: DEXAMETHASONE ACETATE
     Dates: start: 20181029, end: 20181030
  10. LANSOPRAZOLE [Concomitant]
     Active Substance: LANSOPRAZOLE
     Dates: start: 20180821, end: 20180821
  11. LANSOPRAZOLE [Concomitant]
     Active Substance: LANSOPRAZOLE
     Dates: start: 20180730, end: 20180730
  12. LANSOPRAZOLE [Concomitant]
     Active Substance: LANSOPRAZOLE
     Dates: start: 20181009, end: 20181009
  13. LANSOPRAZOLE [Concomitant]
     Active Substance: LANSOPRAZOLE
     Dates: start: 20180918, end: 20180918
  14. LANSOPRAZOLE [Concomitant]
     Active Substance: LANSOPRAZOLE
     Dates: start: 20181030, end: 20181030
  15. LANSOPRAZOLE [Concomitant]
     Active Substance: LANSOPRAZOLE
     Dates: start: 20190103, end: 20190103
  16. LANSOPRAZOLE [Concomitant]
     Active Substance: LANSOPRAZOLE
     Dates: start: 20190124, end: 20190124
  17. LANSOPRAZOLE [Concomitant]
     Active Substance: LANSOPRAZOLE
     Dates: start: 20190220, end: 20190220
  18. LANSOPRAZOLE [Concomitant]
     Active Substance: LANSOPRAZOLE
     Dates: start: 20190313, end: 20190313
  19. LANSOPRAZOLE [Concomitant]
     Active Substance: LANSOPRAZOLE
     Dates: start: 20181120, end: 20181120
  20. LANSOPRAZOLE [Concomitant]
     Active Substance: LANSOPRAZOLE
     Dates: start: 20181211, end: 20181211
  21. LANSOPRAZOLE [Concomitant]
     Active Substance: LANSOPRAZOLE
     Dates: start: 20190403, end: 20190403
  22. AMIFOSTINE [Concomitant]
     Active Substance: AMIFOSTINE
     Dates: start: 20180821, end: 20180821
  23. AMIFOSTINE [Concomitant]
     Active Substance: AMIFOSTINE
     Dates: start: 20180730, end: 20180730
  24. AMIFOSTINE [Concomitant]
     Active Substance: AMIFOSTINE
     Dates: start: 20190220, end: 20190220
  25. AMIFOSTINE [Concomitant]
     Active Substance: AMIFOSTINE
     Dates: start: 20190313, end: 20190313
  26. AMIFOSTINE [Concomitant]
     Active Substance: AMIFOSTINE
     Dates: start: 20180918, end: 20180918
  27. AMIFOSTINE [Concomitant]
     Active Substance: AMIFOSTINE
     Dates: start: 20181009, end: 20181009
  28. AMIFOSTINE [Concomitant]
     Active Substance: AMIFOSTINE
     Dates: start: 20181030, end: 20181030
  29. AMIFOSTINE [Concomitant]
     Active Substance: AMIFOSTINE
     Dates: start: 20181120, end: 20181120
  30. AMIFOSTINE [Concomitant]
     Active Substance: AMIFOSTINE
     Dates: start: 20190403, end: 20190403
  31. POTASSIUM CHLORIDE [Concomitant]
     Active Substance: POTASSIUM CHLORIDE
     Dates: start: 20180821, end: 20180821
  32. POTASSIUM CHLORIDE [Concomitant]
     Active Substance: POTASSIUM CHLORIDE
     Dates: start: 20180730, end: 20180730
  33. POTASSIUM CHLORIDE [Concomitant]
     Active Substance: POTASSIUM CHLORIDE
     Dates: start: 20180918, end: 20180918
  34. POTASSIUM CHLORIDE [Concomitant]
     Active Substance: POTASSIUM CHLORIDE
     Dates: start: 20181009, end: 20181009
  35. POTASSIUM CHLORIDE [Concomitant]
     Active Substance: POTASSIUM CHLORIDE
     Dates: start: 20181030, end: 20181030
  36. POTASSIUM CHLORIDE [Concomitant]
     Active Substance: POTASSIUM CHLORIDE
     Dates: start: 20190124, end: 20190125
  37. POTASSIUM CHLORIDE [Concomitant]
     Active Substance: POTASSIUM CHLORIDE
     Dates: start: 20181211, end: 20181211
  38. POTASSIUM CHLORIDE [Concomitant]
     Active Substance: POTASSIUM CHLORIDE
     Dates: start: 20190125, end: 20190130
  39. POTASSIUM CHLORIDE [Concomitant]
     Active Substance: POTASSIUM CHLORIDE
     Dates: start: 20190125, end: 20190125
  40. POTASSIUM CHLORIDE [Concomitant]
     Active Substance: POTASSIUM CHLORIDE
     Dates: start: 20190404, end: 20190404
  41. POTASSIUM CHLORIDE [Concomitant]
     Active Substance: POTASSIUM CHLORIDE
     Dates: start: 20181217, end: 20181217
  42. JUJUBE [Concomitant]
     Indication: Myelosuppression
     Dates: start: 20180801, end: 20180818
  43. JUJUBE [Concomitant]
     Dates: start: 20180823, end: 20180908
  44. EPIMEDIUM [Concomitant]
     Indication: Myelosuppression
     Dates: start: 20180801, end: 20180818
  45. EPIMEDIUM [Concomitant]
     Dates: start: 20180823, end: 20180908
  46. AZASETRON HYDROCHLORIDE [Concomitant]
     Active Substance: AZASETRON HYDROCHLORIDE
     Dates: start: 20180821, end: 20180821
  47. AZASETRON HYDROCHLORIDE [Concomitant]
     Active Substance: AZASETRON HYDROCHLORIDE
     Dates: start: 20180730, end: 20180730
  48. AZASETRON HYDROCHLORIDE [Concomitant]
     Active Substance: AZASETRON HYDROCHLORIDE
     Dates: start: 20180918, end: 20180918
  49. AZASETRON HYDROCHLORIDE [Concomitant]
     Active Substance: AZASETRON HYDROCHLORIDE
     Dates: start: 20181030, end: 20181030
  50. AZASETRON HYDROCHLORIDE [Concomitant]
     Active Substance: AZASETRON HYDROCHLORIDE
     Dates: start: 20181120, end: 20181120
  51. AZASETRON HYDROCHLORIDE [Concomitant]
     Active Substance: AZASETRON HYDROCHLORIDE
     Dates: start: 20181211, end: 20181211
  52. SODIUM CHLORIDE [Concomitant]
     Active Substance: SODIUM CHLORIDE
     Dates: start: 20180821, end: 20180821
  53. ESTAZOLAM [Concomitant]
     Active Substance: ESTAZOLAM
     Dates: start: 20180716, end: 20180730
  54. ESTAZOLAM [Concomitant]
     Active Substance: ESTAZOLAM
     Dates: start: 20180731, end: 20180731
  55. ESTAZOLAM [Concomitant]
     Active Substance: ESTAZOLAM
     Dates: start: 20180910, end: 20180911
  56. ESTAZOLAM [Concomitant]
     Active Substance: ESTAZOLAM
     Dates: start: 20181029, end: 20181030
  57. ESTAZOLAM [Concomitant]
     Active Substance: ESTAZOLAM
     Dates: start: 20190103, end: 20190103
  58. ESTAZOLAM [Concomitant]
     Active Substance: ESTAZOLAM
     Dates: start: 20181221, end: 20181227
  59. ESTAZOLAM [Concomitant]
     Active Substance: ESTAZOLAM
     Dates: start: 20190103, end: 20190103
  60. ESTAZOLAM [Concomitant]
     Active Substance: ESTAZOLAM
     Dates: start: 20190123, end: 20190123
  61. ESTAZOLAM [Concomitant]
     Active Substance: ESTAZOLAM
     Dates: start: 20190213, end: 20190213
  62. ESTAZOLAM [Concomitant]
     Active Substance: ESTAZOLAM
     Dates: start: 20190220, end: 20190220
  63. ESTAZOLAM [Concomitant]
     Active Substance: ESTAZOLAM
     Dates: start: 20190313, end: 20190313
  64. LEUCOGEN (CHINA) [Concomitant]
     Indication: Myelosuppression
     Dates: start: 20180912, end: 20181128
  65. LEUCOGEN (CHINA) [Concomitant]
     Dates: start: 20181217, end: 20190123
  66. LEUCOGEN (CHINA) [Concomitant]
     Dates: start: 20190125
  67. DEXAMETHASONE SODIUM PHOSPHATE [Concomitant]
     Active Substance: DEXAMETHASONE SODIUM PHOSPHATE
     Indication: Mouth ulceration
     Dates: start: 20180915, end: 20180915
  68. DEXAMETHASONE SODIUM PHOSPHATE [Concomitant]
     Active Substance: DEXAMETHASONE SODIUM PHOSPHATE
     Dates: start: 20190102, end: 20190105
  69. AMIKACIN SULFATE [Concomitant]
     Active Substance: AMIKACIN SULFATE
     Indication: Mouth ulceration
     Dates: start: 20180915, end: 20180915
  70. AMIKACIN SULFATE [Concomitant]
     Active Substance: AMIKACIN SULFATE
     Dates: start: 20190102, end: 20190102
  71. LIDOCAINE HYDROCHLORIDE [Concomitant]
     Active Substance: LIDOCAINE HYDROCHLORIDE
     Indication: Mouth ulceration
     Dates: start: 20180915, end: 20180915
  72. LIDOCAINE HYDROCHLORIDE [Concomitant]
     Active Substance: LIDOCAINE HYDROCHLORIDE
     Dates: start: 20181008, end: 20181008
  73. LIDOCAINE HYDROCHLORIDE [Concomitant]
     Active Substance: LIDOCAINE HYDROCHLORIDE
     Dates: start: 20190102, end: 20190114
  74. POVIDONE-IODINE [Concomitant]
     Active Substance: POVIDONE-IODINE
     Dates: start: 20181008, end: 20181008
  75. NIFEDIPINE [Concomitant]
     Active Substance: NIFEDIPINE
     Dates: start: 20181211, end: 20190526
  76. IRBESARTAN [Concomitant]
     Active Substance: IRBESARTAN
     Dates: start: 20181225, end: 20190526
  77. HYDROCHLOROTHIAZIDE [Concomitant]
     Active Substance: HYDROCHLOROTHIAZIDE
     Dates: start: 20181225
  78. CLOSTRIDIUM BUTYRICUM SPORES STRAIN M-55 [Concomitant]
     Active Substance: CLOSTRIDIUM BUTYRICUM SPORES STRAIN M-55
     Indication: Intestinal obstruction
     Dates: start: 20181217, end: 20181219
  79. OMEPRAZOLE SODIUM [Concomitant]
     Active Substance: OMEPRAZOLE SODIUM
     Dates: start: 20181217, end: 20181217
  80. ADENOSINE CYCLIC PHOSPHATE MEGLUMINE [Concomitant]
     Active Substance: ADENOSINE CYCLIC PHOSPHATE MEGLUMINE
     Indication: Arrhythmia
     Dates: start: 20181217, end: 20181217
  81. VITAMIN B6 [Concomitant]
     Active Substance: PYRIDOXINE HYDROCHLORIDE
     Dates: start: 20181217, end: 20181217
  82. FERROUS SUCCINATE [Concomitant]
     Active Substance: FERROUS SUCCINATE
     Dates: start: 20190104, end: 20190114
  83. ACETAMINOPHEN [Concomitant]
     Active Substance: ACETAMINOPHEN
     Indication: Upper respiratory tract infection
     Dates: start: 20190214, end: 20190217
  84. CALCIUM GLUCONATE [Concomitant]
     Active Substance: CALCIUM GLUCONATE
     Indication: Mineral supplementation
     Dates: start: 20190404, end: 20190404
  85. VITAMIN C [Concomitant]
     Active Substance: ASCORBIC ACID
     Dates: start: 20190407
  86. DAPHNIPHYLLUM CALYCINUM [Concomitant]
     Indication: Intestinal obstruction
     Dates: start: 20181217, end: 20181219

REACTIONS (5)
  - Liver injury [Recovered/Resolved]
  - Ileus [Recovered/Resolved]
  - Hyperthyroidism [Recovered/Resolved]
  - Hypothyroidism [Recovered/Resolved]
  - Hypertension [Not Recovered/Not Resolved]

NARRATIVE: CASE EVENT DATE: 20180828
